FAERS Safety Report 6138287-X (Version None)
Quarter: 2009Q1

REPORT INFORMATION
  Report Type: 
  Country: None (occurrence: None)
  Receive Date: 20090331
  Receipt Date: 20090326
  Transmission Date: 20090719
  Serious: Yes (Other)
  Sender: FDA-Public Use
  Company Number: PHEH2009US03069

PATIENT

DRUGS (2)
  1. ZOMETA [Suspect]
     Dosage: UNK
     Dates: start: 20070601, end: 20080101
  2. ZOMETA [Suspect]
     Dosage: UNK
     Dates: start: 20080101

REACTIONS (5)
  - BLISTER [None]
  - ERYTHEMA [None]
  - FEELING HOT [None]
  - MUSCLE SPASMS [None]
  - SKIN BURNING SENSATION [None]
